FAERS Safety Report 16494177 (Version 1)
Quarter: 2019Q2

REPORT INFORMATION
  Report Type: Report from Study
  Country: FR (occurrence: FR)
  Receive Date: 20190628
  Receipt Date: 20190628
  Transmission Date: 20190711
  Serious: Yes (Hospitalization)
  Sender: FDA-Public Use
  Company Number: PHHO2019FR006491

PATIENT
  Age: 10 Year
  Sex: Male

DRUGS (7)
  1. RADIATION THERAPY [Suspect]
     Active Substance: RADIATION THERAPY
     Indication: BRAIN STEM GLIOMA
     Dosage: 1.8 GY, UNK
     Route: 065
     Dates: start: 20190215, end: 20190328
  2. LABETALOL [Concomitant]
     Active Substance: LABETALOL\LABETALOL HYDROCHLORIDE
     Indication: HYPERTENSION
     Dosage: 480 MG, QD
     Route: 048
     Dates: start: 20190523, end: 20190602
  3. PREDNISOLON [Concomitant]
     Active Substance: PREDNISOLONE
     Indication: GLIOMA
     Dosage: 35 MG, QD
     Route: 048
     Dates: start: 20190525, end: 20190602
  4. EVEROLIMUS. [Suspect]
     Active Substance: EVEROLIMUS
     Dosage: UNK
     Route: 048
     Dates: start: 20190604
  5. BACTRIM [Concomitant]
     Active Substance: SULFAMETHOXAZOLE\TRIMETHOPRIM
     Indication: PROPHYLAXIS
     Dosage: 3 SPOONS, DAILY
     Route: 048
     Dates: start: 20190215
  6. EVEROLIMUS. [Suspect]
     Active Substance: EVEROLIMUS
     Indication: BRAIN STEM GLIOMA
     Dosage: 3 MG, UNK
     Route: 048
     Dates: start: 20190215
  7. ENALAPRIL [Concomitant]
     Active Substance: ENALAPRIL
     Indication: HYPERTENSION
     Dosage: 10 MG, QD
     Route: 048
     Dates: start: 20190522, end: 20190602

REACTIONS (1)
  - Nephrolithiasis [Recovered/Resolved]

NARRATIVE: CASE EVENT DATE: 20190601
